FAERS Safety Report 8405927-1 (Version None)
Quarter: 2012Q1

REPORT INFORMATION
  Report Type: 
  Country: None (occurrence: None)
  Receive Date: 20120323
  Receipt Date: 20110110
  Transmission Date: 20120608
  Serious: Yes (Hospitalization, Other)
  Sender: FDA-Public Use
  Company Number: 163-21880-11011052

PATIENT
  Age: 80 Year
  Sex: Male

DRUGS (2)
  1. REVLIMID [Suspect]
     Indication: MULTIPLE MYELOMA
     Dosage: 10 MG, DAILY FOR 21 DAYS, 7 DAYS OFF, PO, 10 MG, DAILY FOR  21 DAYS OFF, PO
     Route: 048
     Dates: start: 20110101
  2. REVLIMID [Suspect]
     Indication: MULTIPLE MYELOMA
     Dosage: 10 MG, DAILY FOR 21 DAYS, 7 DAYS OFF, PO, 10 MG, DAILY FOR  21 DAYS OFF, PO
     Route: 048
     Dates: start: 20100805, end: 20100101

REACTIONS (1)
  - RENAL FAILURE [None]
